FAERS Safety Report 7386299-0 (Version None)
Quarter: 2011Q1

REPORT INFORMATION
  Report Type: 
  Country: None (occurrence: None)
  Receive Date: 20110331
  Receipt Date: 20110317
  Transmission Date: 20110831
  Serious: Yes (Other)
  Sender: FDA-Public Use
  Company Number: PHHY2011US16800

PATIENT
  Sex: Female

DRUGS (6)
  1. BACLOFEN [Concomitant]
     Dosage: 10 MG, BID
     Route: 048
  2. LORAZEPAM [Concomitant]
     Dosage: 0.5 MG, UNK
     Route: 048
  3. AMPYRA [Concomitant]
     Dosage: 10 MG, Q12H
     Route: 048
  4. ZOLOFT [Concomitant]
     Dosage: 100 MG, DAILY
     Route: 048
  5. METHOCARBAMOL [Concomitant]
     Dosage: 500 MG, QHS
     Route: 048
  6. GILENYA [Suspect]
     Indication: MULTIPLE SCLEROSIS
     Dosage: 0.5 MG, QD
     Route: 048
     Dates: start: 20110222

REACTIONS (2)
  - ABNORMAL DREAMS [None]
  - NIGHTMARE [None]
